FAERS Safety Report 4861512-X (Version None)
Quarter: 2005Q4

REPORT INFORMATION
  Report Type: 
  Country: None (occurrence: None)
  Receive Date: 20051129
  Receipt Date: 20050913
  Transmission Date: 20060501
  Serious: Yes (Other)
  Sender: FDA-Public Use
  Company Number: WAES 0509USA01797

PATIENT
  Age: 60 Year
  Sex: Female

DRUGS (2)
  1. FOSAMAX [Suspect]
     Indication: OSTEOPOROSIS
     Dosage: PO
     Route: 048
     Dates: start: 20000901
  2. ANTINEOPLASTIC [Concomitant]

REACTIONS (1)
  - OSTEONECROSIS [None]
